FAERS Safety Report 4731261-7 (Version None)
Quarter: 2005Q3

REPORT INFORMATION
  Report Type: 
  Country: None (occurrence: None)
  Receive Date: 20050801
  Receipt Date: 20050719
  Transmission Date: 20060218
  Serious: Yes (Death)
  Sender: FDA-Public Use
  Company Number: GXKR2005DE01348

PATIENT
  Age: 48 Year
  Sex: Male

DRUGS (1)
  1. DIAZEPAM [Suspect]

REACTIONS (6)
  - DIFFICULTY IN WALKING [None]
  - DRUG LEVEL INCREASED [None]
  - FATIGUE [None]
  - RESPIRATORY ARREST [None]
  - SPEECH DISORDER [None]
  - SUDDEN DEATH [None]
